FAERS Safety Report 5591137-2 (Version None)
Quarter: 2008Q1

REPORT INFORMATION
  Report Type: 
  Country: None (occurrence: None)
  Receive Date: 20080110
  Receipt Date: 20080102
  Transmission Date: 20080703
  Serious: Yes (Hospitalization)
  Sender: FDA-Public Use
  Company Number: 2008SP000077

PATIENT
  Age: 84 Year
  Sex: Female

DRUGS (7)
  1. NITRO-DUR [Suspect]
     Indication: ISCHAEMIC CARDIOMYOPATHY
     Dosage: 1 DF; QD; TDER
     Route: 062
     Dates: start: 20000101, end: 20070501
  2. SOLINITRINA (GLYCERYL TRINITRATE) [Suspect]
     Indication: ACUTE CORONARY SYNDROME
     Dosage: IV
     Route: 042
     Dates: start: 20070415, end: 20070416
  3. SEGURIL (FUROSEMIDE) (80 MG) [Suspect]
     Indication: DRUG USE FOR UNKNOWN INDICATION
     Dosage: 2 DF; BID; PO
     Route: 048
     Dates: start: 20000101
  4. CLOPIDOGREL [Suspect]
     Indication: DRUG USE FOR UNKNOWN INDICATION
     Dosage: 75 MG; QD; PO
     Route: 048
     Dates: start: 20000101
  5. TRANGOREX (AMIODARONE HYDROCHLORIDE) [Suspect]
     Indication: DRUG USE FOR UNKNOWN INDICATION
     Dosage: 200 MG; QD; PO
     Route: 048
     Dates: start: 20000101
  6. PREVENCOR (ATORVASTATIN HYDROCHLORIDE) (ATORVASTATIN CALCIUM) [Suspect]
     Indication: DRUG USE FOR UNKNOWN INDICATION
     Dates: start: 20000101
  7. ACETYLSALICYLIC ACID SRT [Suspect]
     Indication: DRUG USE FOR UNKNOWN INDICATION
     Dosage: 100 MG; QD;
     Dates: start: 20000101

REACTIONS (2)
  - ANAEMIA HAEMOLYTIC AUTOIMMUNE [None]
  - DRUG INTERACTION [None]
